FAERS Safety Report 19402694 (Version 1)
Quarter: 2021Q2

REPORT INFORMATION
  Report Type: Spontaneous
  Country: US (occurrence: US)
  Receive Date: 20210611
  Receipt Date: 20210611
  Transmission Date: 20210717
  Serious: No
  Sender: FDA-Public Use
  Company Number: US-JNJFOC-20210604437

PATIENT
  Sex: Male

DRUGS (1)
  1. CETIRIZINE HYDROCHLORIDE. [Suspect]
     Active Substance: CETIRIZINE HYDROCHLORIDE
     Indication: PRODUCT USED FOR UNKNOWN INDICATION
     Route: 065

REACTIONS (10)
  - Ocular hyperaemia [Unknown]
  - Heart rate increased [Unknown]
  - Feeling hot [Unknown]
  - Blood pressure increased [Unknown]
  - Tremor [Unknown]
  - Haemoglobin increased [Unknown]
  - Rash erythematous [Unknown]
  - Psoriasis [Unknown]
  - Skin discolouration [Unknown]
  - Erythema [Unknown]
